FAERS Safety Report 26054703 (Version 1)
Quarter: 2025Q4

REPORT INFORMATION
  Report Type: Spontaneous
  Country: EU (occurrence: EU)
  Receive Date: 20251117
  Receipt Date: 20251117
  Transmission Date: 20260117
  Serious: Yes (Hospitalization)
  Sender: GILEAD
  Company Number: EU-GILEAD-2025-0736363

PATIENT
  Age: 71 Year
  Sex: Male

DRUGS (5)
  1. ODEFSEY [Suspect]
     Active Substance: EMTRICITABINE\RILPIVIRINE HYDROCHLORIDE\TENOFOVIR ALAFENAMIDE FUMARATE
     Indication: HIV infection
     Dosage: UNK
     Route: 065
     Dates: start: 20161007
  2. LEVOTHYROXINE SODIUM [Concomitant]
     Active Substance: LEVOTHYROXINE SODIUM
     Dosage: 150?G 1 0 0
  3. RAMIPRIL/AMLODIPIN ABZ [Concomitant]
     Dosage: 5/5MG 1 0 0
  4. ELIQUIS [Concomitant]
     Active Substance: APIXABAN
     Dosage: 5MG 1 0 1
  5. BISOPROLOL [Concomitant]
     Active Substance: BISOPROLOL
     Dosage: 5MG ? 0 0

REACTIONS (1)
  - Anaemia [Unknown]

NARRATIVE: CASE EVENT DATE: 20240701
